FAERS Safety Report 5823110-0 (Version None)
Quarter: 2008Q3

REPORT INFORMATION
  Report Type: 
  Country: None (occurrence: None)
  Receive Date: 20080725
  Receipt Date: 20070716
  Transmission Date: 20090109
  Serious: No
  Sender: FDA-Public Use
  Company Number: US-AMGEN-KDL234517

PATIENT
  Sex: Female

DRUGS (5)
  1. PROCRIT [Suspect]
     Indication: RENAL FAILURE CHRONIC
  2. NORVASC [Concomitant]
     Dates: start: 20070711
  3. COREG [Concomitant]
     Dates: start: 20070711
  4. LASIX [Concomitant]
     Dates: start: 20070101
  5. POTASSIUM CHLORIDE [Concomitant]
     Dates: start: 20070101

REACTIONS (3)
  - BLOOD PRESSURE ABNORMAL [None]
  - DIZZINESS [None]
  - SYNCOPE [None]
